FAERS Safety Report 5813798-2 (Version None)
Quarter: 2008Q3

REPORT INFORMATION
  Report Type: 
  Country: None (occurrence: None)
  Receive Date: 20080717
  Receipt Date: 20080710
  Transmission Date: 20090109
  Serious: Yes (Other)
  Sender: FDA-Public Use
  Company Number: PHBS2008BR05084

PATIENT
  Sex: Male

DRUGS (11)
  1. SLOW-K [Suspect]
     Indication: MUSCLE SPASMS
     Dosage: UNK
     Route: 048
     Dates: start: 20080501
  2. SLOW-K [Suspect]
     Dosage: 600 MG, QD
     Route: 048
     Dates: start: 20080710
  3. MODURETIC 5-50 [Concomitant]
     Indication: HYPERTENSION
     Dosage: 2.5 MG, UNK
     Route: 048
  4. BALCOR [Concomitant]
     Indication: HEART RATE INCREASED
     Dosage: 90 MG/DAY
     Route: 048
  5. METICORTEN [Concomitant]
     Indication: PLATELET COUNT INCREASED
     Dosage: 1.5 TAB/DAY
     Route: 048
  6. PANTOPRAZOLE SODIUM [Concomitant]
     Indication: ABDOMINAL PAIN UPPER
     Dosage: UNK
     Route: 048
  7. OSCAL 500-D [Concomitant]
     Indication: OSTEOPOROSIS
     Dosage: 1 DF, QD
     Route: 048
  8. ALENDRONATE SODIUM [Concomitant]
     Dosage: UNK
     Route: 048
  9. METFORMIN HYDROCHLORIDE [Concomitant]
     Indication: GLUCOSE TOLERANCE IMPAIRED
     Dosage: UNK
     Route: 048
  10. UNOPROST [Concomitant]
     Indication: DYSURIA
     Dosage: 1 DF, QD
     Route: 048
     Dates: start: 20080301
  11. PASSANEURO [Concomitant]
     Dosage: UNK
     Route: 048

REACTIONS (5)
  - ABDOMINAL PAIN UPPER [None]
  - HUNGER [None]
  - HYPERPHAGIA [None]
  - MUSCLE SPASMS [None]
  - PLATELET COUNT DECREASED [None]
